FAERS Safety Report 10800735 (Version 2)
Quarter: 2015Q1

REPORT INFORMATION
  Report Type: Spontaneous
  Country: US (occurrence: US)
  Receive Date: 20150216
  Receipt Date: 20150216
  Transmission Date: 20150721
  Serious: No
  Sender: FDA-Public Use
  Company Number: US-ALLERGAN-1424107US

PATIENT
  Sex: Male

DRUGS (3)
  1. REFRESH OPTIVE SENSITIVE [Concomitant]
     Active Substance: CARBOXYMETHYLCELLULOSE SODIUM\GLYCERIN
  2. RESTASIS [Suspect]
     Active Substance: CYCLOSPORINE
     Indication: DRY EYE
     Dosage: 2 GTT, BID
     Route: 047
     Dates: start: 20141118
  3. FRESHKOTE [Concomitant]
     Active Substance: POLYVINYL ALCOHOL\POVIDONE

REACTIONS (2)
  - Incorrect dose administered [Unknown]
  - Eye irritation [Recovered/Resolved]
